FAERS Safety Report 6750156-0 (Version None)
Quarter: 2010Q2

REPORT INFORMATION
  Report Type: 
  Country: None (occurrence: None)
  Receive Date: 20100527
  Receipt Date: 20100527
  Transmission Date: 20101027
  Serious: Yes (Other)
  Sender: FDA-Public Use
  Company Number: None

PATIENT
  Age: 56 Year
  Sex: Female
  Weight: 81.6475 kg

DRUGS (2)
  1. CLINDAMYCIN HCL [Suspect]
     Indication: PREMEDICATION
     Dosage: 300 MG 2 PRIOR TO DENTAL OTIC
     Route: 001
     Dates: start: 20100517, end: 20100517
  2. CLINDAMYCIN HCL [Suspect]
     Indication: PREMEDICATION
     Dosage: 300 MG 2 PRIOR TO DENTAL OTIC
     Route: 001
     Dates: start: 20100525, end: 20100525

REACTIONS (6)
  - ABDOMINAL DISTENSION [None]
  - ABDOMINAL PAIN [None]
  - DIARRHOEA [None]
  - NAUSEA [None]
  - VAGINAL HAEMORRHAGE [None]
  - VOMITING [None]
